FAERS Safety Report 19525397 (Version 1)
Quarter: 2021Q3

REPORT INFORMATION
  Report Type: Spontaneous
  Country: JP (occurrence: JP)
  Receive Date: 20210713
  Receipt Date: 20210713
  Transmission Date: 20211014
  Serious: Yes (Other)
  Sender: FDA-Public Use
  Company Number: JP-AMGEN-JPNSP2021104947

PATIENT
  Age: 53 Year
  Sex: Female

DRUGS (2)
  1. CYCLOSPORIN [Concomitant]
     Active Substance: CYCLOSPORINE
     Indication: RASH
     Dosage: 100 MILLIGRAM, QD
  2. ENBREL [Suspect]
     Active Substance: ETANERCEPT
     Indication: PUSTULOTIC ARTHRO-OSTEITIS
     Dosage: 50 MG/DOSE
     Route: 065

REACTIONS (3)
  - Rash pustular [Unknown]
  - Paradoxical drug reaction [Unknown]
  - Off label use [Unknown]
